FAERS Safety Report 19682123 (Version 1)
Quarter: 2021Q3

REPORT INFORMATION
  Report Type: Report from Study
  Country: US (occurrence: US)
  Receive Date: 20210810
  Receipt Date: 20210810
  Transmission Date: 20211014
  Serious: Yes (Other)
  Sender: FDA-Public Use
  Company Number: US-TAKEDA-US202009738

PATIENT
  Sex: Male

DRUGS (1)
  1. CUVITRU [Suspect]
     Active Substance: HUMAN IMMUNOGLOBULIN G
     Indication: IMMUNODEFICIENCY COMMON VARIABLE
     Dosage: UNK
     Route: 065

REACTIONS (7)
  - Incorrect product administration duration [Unknown]
  - COVID-19 [Unknown]
  - Fall [Unknown]
  - Staphylococcal infection [Unknown]
  - Clostridium difficile infection [Unknown]
  - Sinusitis [Unknown]
  - Concussion [Unknown]
